FAERS Safety Report 9306463 (Version 3)
Quarter: 2013Q2

REPORT INFORMATION
  Report Type: Spontaneous
  Country: US (occurrence: US)
  Receive Date: 20130523
  Receipt Date: 20130530
  Transmission Date: 20140414
  Serious: Yes (Death, Hospitalization)
  Sender: FDA-Public Use
  Company Number: US-MERCK-1305USA012086

PATIENT
  Age: 72 Year
  Sex: Male

DRUGS (4)
  1. TEMODAR [Suspect]
     Indication: CARCINOID TUMOUR
     Dosage: 1 CAPSULE A DAY FOR 7 DAYS, EVERY 2 WEEKS
     Route: 048
     Dates: start: 20120725, end: 20120828
  2. POTASSIUM (UNSPECIFIED) [Concomitant]
  3. MAGNESIUM (UNSPECIFIED) [Concomitant]
  4. THALOMID [Concomitant]
     Route: 042

REACTIONS (2)
  - Death [Fatal]
  - Malaise [Not Recovered/Not Resolved]
